FAERS Safety Report 10441107 (Version 1)
Quarter: 2014Q3

REPORT INFORMATION
  Report Type: Spontaneous
  Country: US (occurrence: None)
  Receive Date: 20140908
  Receipt Date: 20140908
  Transmission Date: 20150326
  Serious: No
  Sender: FDA-Public Use
  Company Number: None

PATIENT
  Age: 23 Year
  Sex: Male
  Weight: 122.47 kg

DRUGS (1)
  1. SUBSYS [Suspect]
     Active Substance: FENTANYL
     Indication: BREAKTHROUGH PAIN
     Dosage: 1 AMPULE  THREE TIMES DAILY  TAKEN UNDER THE TONGUE
     Route: 060
     Dates: start: 20140906, end: 20140906

REACTIONS (3)
  - Chemical injury [None]
  - Burning sensation [None]
  - Reaction to drug excipients [None]

NARRATIVE: CASE EVENT DATE: 20140906
